FAERS Safety Report 18199466 (Version 1)
Quarter: 2020Q3

REPORT INFORMATION
  Report Type: Report from Study
  Country: CA (occurrence: CA)
  Receive Date: 20200826
  Receipt Date: 20200826
  Transmission Date: 20201103
  Serious: Yes (Other)
  Sender: FDA-Public Use
  Company Number: CA-COVIS PHARMA B.V.-2020COV00377

PATIENT
  Age: 68 Year
  Sex: Male

DRUGS (9)
  1. SINGULAIR [Suspect]
     Active Substance: MONTELUKAST SODIUM
     Dosage: 10 MG, 1X/DAY
     Route: 048
  2. RAMIPRIL. [Suspect]
     Active Substance: RAMIPRIL
     Dosage: 5 MG, 1X/DAY
     Route: 048
  3. SALBUTAMOL SULFATE [Suspect]
     Active Substance: ALBUTEROL SULFATE
     Dosage: UNK
  4. NUCALA [Suspect]
     Active Substance: MEPOLIZUMAB
  5. SPIRIVA [Suspect]
     Active Substance: TIOTROPIUM BROMIDE MONOHYDRATE
  6. BISOPROLOL [Suspect]
     Active Substance: BISOPROLOL
     Dosage: 10 MG, 1X/DAY
     Route: 048
  7. VITAMIN D [Suspect]
     Active Substance: VITAMIN D NOS
  8. OMNARIS [Suspect]
     Active Substance: CICLESONIDE
  9. SYMBICORT [Suspect]
     Active Substance: BUDESONIDE\FORMOTEROL FUMARATE DIHYDRATE
     Dosage: 6 DF, 3X/DAY

REACTIONS (20)
  - Middle ear effusion [Unknown]
  - Pneumonia [Unknown]
  - Fungal infection [Unknown]
  - Infection [Unknown]
  - Tryptase increased [Unknown]
  - Dyspnoea [Unknown]
  - Nasal mucosal disorder [Unknown]
  - Nasal polyps [Unknown]
  - Eosinophil count increased [Unknown]
  - Sinusitis [Unknown]
  - Drug hypersensitivity [Unknown]
  - Blood immunoglobulin E increased [Unknown]
  - Enterobacter infection [Unknown]
  - Cough [Unknown]
  - Sinus disorder [Unknown]
  - Respiratory tract infection [Unknown]
  - Nasal disorder [Unknown]
  - Multiple allergies [Unknown]
  - Nasal obstruction [Unknown]
  - Wheezing [Unknown]
